FAERS Safety Report 26068672 (Version 1)
Quarter: 2025Q4

REPORT INFORMATION
  Report Type: Spontaneous
  Country: GB (occurrence: GB)
  Receive Date: 20251120
  Receipt Date: 20251120
  Transmission Date: 20260117
  Serious: Yes (Life-Threatening, Other)
  Sender: ABBVIE
  Company Number: None

PATIENT
  Age: 41 Year
  Sex: Male
  Weight: 11 kg

DRUGS (1)
  1. CITALOPRAM [Suspect]
     Active Substance: CITALOPRAM
     Indication: Product used for unknown indication
     Dosage: 10MG
     Route: 048

REACTIONS (8)
  - Cough [Unknown]
  - Lethargy [Unknown]
  - Headache [Unknown]
  - Bruxism [Unknown]
  - Medication error [Unknown]
  - Dyspnoea [Unknown]
  - Night sweats [Unknown]
  - Anosmia [Unknown]
